FAERS Safety Report 16012010 (Version 2)
Quarter: 2019Q2

REPORT INFORMATION
  Report Type: Spontaneous
  Country: RU (occurrence: RU)
  Receive Date: 20190227
  Receipt Date: 20190411
  Transmission Date: 20190711
  Serious: Yes (Other)
  Sender: FDA-Public Use
  Company Number: PHHY2019RU043168

PATIENT
  Age: 76 Year
  Sex: Male

DRUGS (4)
  1. PACLITAXEL. [Suspect]
     Active Substance: PACLITAXEL
     Dosage: 60 MG/M2, ON DAYS 1,8,5 (CYCLE 28 DAYS)
     Route: 042
     Dates: end: 201801
  2. RAMUCIRUMAB [Suspect]
     Active Substance: RAMUCIRUMAB
     Indication: METASTATIC GASTRIC CANCER
     Dosage: 8 MG/KG, ON DAYS 1,15 (CYCLE 28 DAYS)
     Route: 065
     Dates: start: 201701
  3. RAMUCIRUMAB [Suspect]
     Active Substance: RAMUCIRUMAB
     Dosage: 6 MG/KG, ON DAYS 1,15 (CYCLE 28 DAYS)
     Route: 065
     Dates: end: 201801
  4. PACLITAXEL. [Suspect]
     Active Substance: PACLITAXEL
     Indication: METASTATIC GASTRIC CANCER
     Dosage: 80 MG/M2, ON DAYS 1,8,5 (CYCLE 28 DAYS)
     Route: 042
     Dates: start: 201701

REACTIONS (7)
  - Polyneuropathy [Recovered/Resolved]
  - Malignant neoplasm progression [Unknown]
  - Weight decreased [Unknown]
  - Discomfort [Unknown]
  - Febrile neutropenia [Recovered/Resolved]
  - Metastatic gastric cancer [Unknown]
  - Stomatitis [Recovered/Resolved]

NARRATIVE: CASE EVENT DATE: 201801
